FAERS Safety Report 22271113 (Version 1)
Quarter: 2023Q2

REPORT INFORMATION
  Report Type: Spontaneous
  Country: US (occurrence: US)
  Receive Date: 20230501
  Receipt Date: 20230501
  Transmission Date: 20230722
  Serious: No
  Sender: FDA-Public Use
  Company Number: US-MYLANLABS-2023M1036159

PATIENT
  Age: 66 Year
  Sex: Male
  Weight: 74.84 kg

DRUGS (2)
  1. ATORVASTATIN [Suspect]
     Active Substance: ATORVASTATIN
     Indication: Blood cholesterol increased
     Dosage: 40 MILLIGRAM
     Route: 065
  2. ELIQUIS [Suspect]
     Active Substance: APIXABAN
     Indication: Cerebrovascular accident prophylaxis
     Dosage: 5 MILLIGRAM (2 EVERY 1 DAY)
     Route: 065

REACTIONS (2)
  - Coronavirus infection [Unknown]
  - Yellow skin [Unknown]

NARRATIVE: CASE EVENT DATE: 20230301
